FAERS Safety Report 6624758-6 (Version None)
Quarter: 2010Q1

REPORT INFORMATION
  Report Type: 
  Country: None (occurrence: None)
  Receive Date: 20100310
  Receipt Date: 20100303
  Transmission Date: 20100710
  Serious: Yes (Other)
  Sender: FDA-Public Use
  Company Number: FR-PFIZER INC-2010028450

PATIENT
  Age: 29 Year
  Sex: Female

DRUGS (1)
  1. REVATIO [Suspect]
     Indication: SCLERODERMA
     Dosage: 20 MG, 3X/DAY

REACTIONS (3)
  - FLUSHING [None]
  - HEADACHE [None]
  - PHARYNGEAL OEDEMA [None]
